FAERS Safety Report 13608335 (Version 2)
Quarter: 2017Q3

REPORT INFORMATION
  Report Type: Spontaneous
  Country: IT (occurrence: IT)
  Receive Date: 20170602
  Receipt Date: 20170810
  Transmission Date: 20171127
  Serious: Yes (Death, Hospitalization)
  Sender: FDA-Public Use
  Company Number: IT-CELGENEUS-ITA-20170507946

PATIENT
  Age: 81 Year
  Sex: Male

DRUGS (6)
  1. GABAPENTIN. [Concomitant]
     Active Substance: GABAPENTIN
     Indication: PROCTALGIA
     Dosage: 3 TABLET
     Route: 065
  2. LEVORAG EMULGEL [Concomitant]
     Indication: PROCTALGIA
     Route: 065
  3. ACYCLOVIR. [Concomitant]
     Active Substance: ACYCLOVIR
     Indication: ANTIVIRAL PROPHYLAXIS
     Route: 065
  4. REVLIMID [Suspect]
     Active Substance: LENALIDOMIDE
     Indication: PLASMA CELL MYELOMA
     Dosage: 5 MILLIGRAM
     Route: 048
     Dates: start: 20170207, end: 20170509
  5. ASACOL [Concomitant]
     Active Substance: MESALAMINE
     Indication: PROCTALGIA
     Dosage: 2400 MILLIGRAM
     Route: 065
  6. MORPHINE [Concomitant]
     Active Substance: MORPHINE
     Indication: PROCTALGIA
     Route: 065

REACTIONS (2)
  - Proctalgia [Unknown]
  - Anaemia [Unknown]

NARRATIVE: CASE EVENT DATE: 201703
